FAERS Safety Report 15462763 (Version 2)
Quarter: 2018Q4

REPORT INFORMATION
  Report Type: Spontaneous
  Country: US (occurrence: US)
  Receive Date: 20181004
  Receipt Date: 20181011
  Transmission Date: 20190204
  Serious: No
  Sender: FDA-Public Use
  Company Number: US-CELGENEUS-USA-20180910740

PATIENT
  Age: 47 Year
  Sex: Female

DRUGS (8)
  1. OTEZLA [Suspect]
     Active Substance: APREMILAST
     Dosage: 30 MILLIGRAM
     Route: 048
     Dates: start: 20180709, end: 201808
  2. CLARITIN [Concomitant]
     Active Substance: LORATADINE
     Indication: ALLERGY PROPHYLAXIS
     Route: 065
  3. EXCEDRIN MIGRAINE [Concomitant]
     Active Substance: ACETAMINOPHEN\ASPIRIN\CAFFEINE
     Indication: MIGRAINE PROPHYLAXIS
     Route: 065
  4. DOVOBET [Concomitant]
     Active Substance: BETAMETHASONE\CALCIPOTRIENE
     Indication: PSORIASIS
     Route: 065
     Dates: start: 201410
  5. OTEZLA [Suspect]
     Active Substance: APREMILAST
     Indication: PSORIASIS
     Dosage: 60 MILLIGRAM
     Route: 048
     Dates: start: 20180608
  6. OTEZLA [Suspect]
     Active Substance: APREMILAST
     Dosage: 60 MILLIGRAM
     Route: 048
     Dates: start: 2018
  7. DIFLORASONE [Concomitant]
     Active Substance: DIFLORASONE DIACETATE
     Indication: PSORIASIS
     Route: 065
     Dates: start: 201410
  8. ULTRAVATE [Concomitant]
     Active Substance: HALOBETASOL PROPIONATE
     Indication: PSORIASIS
     Route: 065
     Dates: start: 201410

REACTIONS (1)
  - Headache [Recovered/Resolved]

NARRATIVE: CASE EVENT DATE: 201806
